FAERS Safety Report 7137726-5 (Version None)
Quarter: 2010Q4

REPORT INFORMATION
  Report Type: 
  Country: None (occurrence: None)
  Receive Date: 20101206
  Receipt Date: 20101123
  Transmission Date: 20110411
  Serious: Yes (Other)
  Sender: FDA-Public Use
  Company Number: PHHY2010EG79948

PATIENT
  Age: 73 Year
  Sex: Male

DRUGS (2)
  1. EXELON [Suspect]
     Indication: DEMENTIA ALZHEIMER'S TYPE
     Dosage: 4.5MG/24 HOURS
     Route: 062
  2. ASPOCID [Concomitant]

REACTIONS (3)
  - COMA [None]
  - HYPOTENSION [None]
  - LOSS OF CONSCIOUSNESS [None]
